FAERS Safety Report 12419926 (Version 4)
Quarter: 2016Q3

REPORT INFORMATION
  Report Type: Spontaneous
  Country: US (occurrence: US)
  Receive Date: 20160531
  Receipt Date: 20160701
  Transmission Date: 20161109
  Serious: Yes (Other)
  Sender: FDA-Public Use
  Company Number: US-LUNDBECK-DKLU2014412

PATIENT
  Age: 72 Year
  Sex: Male

DRUGS (6)
  1. NORTHERA [Suspect]
     Active Substance: DROXIDOPA
     Indication: ORTHOSTATIC HYPOTENSION
     Route: 048
     Dates: start: 20160513
  2. NORTHERA [Interacting]
     Active Substance: DROXIDOPA
     Route: 048
     Dates: start: 20160521
  3. NORTHERA [Interacting]
     Active Substance: DROXIDOPA
     Dosage: DOSE REDUCED
     Route: 048
     Dates: start: 20160601
  4. SINEMET [Interacting]
     Active Substance: CARBIDOPA\LEVODOPA
     Indication: PRODUCT USED FOR UNKNOWN INDICATION
     Route: 065
  5. SINEMET [Interacting]
     Active Substance: CARBIDOPA\LEVODOPA
     Dosage: 25/100 MG
     Route: 065
     Dates: start: 20160531
  6. NORTHERA [Interacting]
     Active Substance: DROXIDOPA
     Route: 048

REACTIONS (8)
  - Syncope [Recovered/Resolved]
  - Orthostatic hypertension [Recovered/Resolved]
  - Blood pressure fluctuation [Unknown]
  - Carotid artery occlusion [Unknown]
  - Fall [Unknown]
  - Condition aggravated [Unknown]
  - Dizziness [Unknown]
  - Drug interaction [Unknown]

NARRATIVE: CASE EVENT DATE: 20160522
